FAERS Safety Report 8580773 (Version 2)
Quarter: 2013Q1

REPORT INFORMATION
  Report Type: Spontaneous
  Country: US (occurrence: US)
  Receive Date: 20120525
  Receipt Date: 20130228
  Transmission Date: 20140127
  Serious: Yes (Other)
  Sender: FDA-Public Use
  Company Number: US-ROCHE-1069736

PATIENT
  Age: 23 Year
  Sex: Female
  Weight: 72.64 kg

DRUGS (3)
  1. ACCUTANE [Suspect]
     Indication: ACNE
     Route: 065
     Dates: start: 19960124, end: 19960624
  2. ACCUTANE [Suspect]
     Route: 065
     Dates: end: 2008
  3. CLARAVIS [Suspect]
     Indication: PRODUCT USED FOR UNKNOWN INDICATION
     Route: 048
     Dates: start: 20091202, end: 20100102

REACTIONS (6)
  - Inflammatory bowel disease [Unknown]
  - Colitis ulcerative [Unknown]
  - Anxiety [Unknown]
  - Depression [Unknown]
  - Dermatitis contact [Unknown]
  - Acne [Unknown]
